FAERS Safety Report 13843243 (Version 2)
Quarter: 2017Q3

REPORT INFORMATION
  Report Type: Spontaneous
  Country: ES (occurrence: ES)
  Receive Date: 20170808
  Receipt Date: 20170829
  Transmission Date: 20171127
  Serious: Yes (Other)
  Sender: FDA-Public Use
  Company Number: ES-AUROBINDO-AUR-APL-2017-38742

PATIENT
  Age: 72 Year
  Sex: Female

DRUGS (1)
  1. IRBESARTAN AND HYDROCHLOROTHIAZIDE [Suspect]
     Active Substance: HYDROCHLOROTHIAZIDE\IRBESARTAN
     Indication: HYPERTENSION

REACTIONS (6)
  - Skin atrophy [Recovering/Resolving]
  - Alopecia [Not Recovered/Not Resolved]
  - Subacute cutaneous lupus erythematosus [Recovering/Resolving]
  - Ecchymosis [Recovering/Resolving]
  - Skin lesion [Recovering/Resolving]
  - Madarosis [Not Recovered/Not Resolved]
